FAERS Safety Report 15552719 (Version 9)
Quarter: 2019Q1

REPORT INFORMATION
  Report Type: Report from Study
  Country: US (occurrence: US)
  Receive Date: 20181025
  Receipt Date: 20190325
  Transmission Date: 20190417
  Serious: Yes (Hospitalization)
  Sender: FDA-Public Use
  Company Number: US-ACTELION-A-NJ2018-178453

PATIENT
  Sex: Female
  Weight: 51.7 kg

DRUGS (6)
  1. REMODULIN [Concomitant]
     Active Substance: TREPROSTINIL
     Dosage: UNK
     Route: 042
  2. OPSUMIT [Suspect]
     Active Substance: MACITENTAN
     Indication: PULMONARY HYPERTENSION
     Dosage: 10 MG, QD
     Route: 048
  3. SILDENAFIL CITRATE. [Concomitant]
     Active Substance: SILDENAFIL CITRATE
  4. REMODULIN [Concomitant]
     Active Substance: TREPROSTINIL
     Dosage: UNK
     Route: 058
  5. EPOPROSTENOL TEVA [Concomitant]
  6. WARFARIN [Concomitant]
     Active Substance: WARFARIN

REACTIONS (9)
  - Catheter site discharge [Unknown]
  - Vascular device infection [Unknown]
  - Pulmonary arterial hypertension [Unknown]
  - Sensitive skin [Unknown]
  - Hospitalisation [Unknown]
  - Catheter site erythema [Unknown]
  - Pulmonary hypertension [Unknown]
  - Syncope [Unknown]
  - Lung transplant [Unknown]
